FAERS Safety Report 5659316-3 (Version None)
Quarter: 2008Q1

REPORT INFORMATION
  Report Type: 
  Country: None (occurrence: None)
  Receive Date: 20080311
  Receipt Date: 20071017
  Transmission Date: 20080703
  Serious: No
  Sender: FDA-Public Use
  Company Number: US-BAYER-200712285BCC

PATIENT
  Age: 56 Year
  Sex: Female
  Weight: 54 kg

DRUGS (5)
  1. ALEVE [Suspect]
     Dosage: UNIT DOSE: 220 MG
     Route: 048
     Dates: start: 20070701
  2. LAMICTAL [Concomitant]
  3. AMITRIPTYLINE HCL [Concomitant]
  4. ADDERALL 10 [Concomitant]
  5. CLONAZEPAM [Concomitant]

REACTIONS (1)
  - DRUG SCREEN POSITIVE [None]
